FAERS Safety Report 9001654 (Version 2)
Quarter: 2013Q1

REPORT INFORMATION
  Report Type: Spontaneous
  Country: TR (occurrence: TR)
  Receive Date: 20130107
  Receipt Date: 20130125
  Transmission Date: 20140127
  Serious: Yes (Other)
  Sender: FDA-Public Use
  Company Number: TR-ABBOTT-13P-161-1030316-00

PATIENT
  Age: 49 None
  Sex: Female
  Weight: 105 kg

DRUGS (10)
  1. HUMIRA [Suspect]
     Indication: RHEUMATOID ARTHRITIS
     Route: 058
     Dates: start: 20120328
  2. TRAZODONE HYDROCHLORIDE [Suspect]
     Indication: PRODUCT USED FOR UNKNOWN INDICATION
     Dosage: 50MG X 1
     Route: 048
  3. METFORMIN [Concomitant]
     Indication: DIABETES MELLITUS
     Dosage: 1000 MG X 1
     Route: 048
  4. URSOFALK [Concomitant]
     Indication: DYSPEPSIA
     Dosage: 1X1
     Route: 048
  5. ARAVA [Concomitant]
     Indication: RHEUMATOID ARTHRITIS
     Dosage: 2MG X 1
     Route: 048
  6. METEOSPASMYL [Concomitant]
     Indication: DYSPEPSIA
     Dosage: 1X1
     Route: 048
  7. DILTIZEM [Concomitant]
     Indication: PRODUCT USED FOR UNKNOWN INDICATION
     Dosage: 2 X 30 MG
     Route: 048
  8. NORVASC [Concomitant]
     Indication: PRODUCT USED FOR UNKNOWN INDICATION
     Dosage: 5MG X 1
     Route: 048
  9. KAPRIL [Concomitant]
     Indication: PRODUCT USED FOR UNKNOWN INDICATION
     Dosage: 25 MG X 1 (IF BLOOD PRESSURE IS }150/90 MMHG)
     Route: 048
  10. CIPRALEX [Concomitant]
     Indication: PRODUCT USED FOR UNKNOWN INDICATION
     Dosage: 1 X 0.5MG
     Route: 048

REACTIONS (3)
  - Epistaxis [Unknown]
  - Hypertension [Unknown]
  - Tachycardia [Unknown]
